FAERS Safety Report 9127508 (Version 1)
Quarter: 2013Q1

REPORT INFORMATION
  Report Type: Spontaneous
  Country: US (occurrence: US)
  Receive Date: 20130125
  Receipt Date: 20130125
  Transmission Date: 20140127
  Serious: Yes (Other)
  Sender: FDA-Public Use
  Company Number: PHEH2013US001399

PATIENT
  Sex: Female

DRUGS (8)
  1. GILENYA [Suspect]
     Indication: RELAPSING-REMITTING MULTIPLE SCLEROSIS
     Dosage: 0.5 MG, DAILY
     Route: 048
     Dates: start: 20120629, end: 20121204
  2. ACETAMINOPHEN [Concomitant]
  3. CALCIUM + D [Concomitant]
  4. CITALOPRAM [Concomitant]
  5. KEPPRA [Concomitant]
  6. MULTI-VIT [Concomitant]
  7. VITAMIN B-12 [Concomitant]
  8. VITAMIN D3 [Concomitant]

REACTIONS (8)
  - Face oedema [Recovered/Resolved]
  - Localised oedema [Recovered/Resolved]
  - Oedema [Recovered/Resolved]
  - Renal impairment [Recovered/Resolved]
  - Dyspnoea [Recovered/Resolved]
  - Fatigue [Recovered/Resolved]
  - Muscle spasms [Recovered/Resolved]
  - Diplopia [Recovered/Resolved]
